FAERS Safety Report 7234565-1 (Version None)
Quarter: 2011Q1

REPORT INFORMATION
  Report Type: 
  Country: None (occurrence: None)
  Receive Date: 20110120
  Receipt Date: 20110113
  Transmission Date: 20110831
  Serious: Yes (Hospitalization)
  Sender: FDA-Public Use
  Company Number: US-ASTRAZENECA-2008UW16239

PATIENT
  Age: 6454 Day
  Sex: Male
  Weight: 79.4 kg

DRUGS (3)
  1. SEROQUEL [Suspect]
     Indication: SLEEP DISORDER
     Route: 048
     Dates: start: 20050701, end: 20060201
  2. STRATTERA [Concomitant]
     Dosage: TK 1 C PO QAM / TK 1 C PO HS
     Route: 048
     Dates: start: 20050527
  3. SEROQUEL [Suspect]
     Route: 048
     Dates: start: 20050708

REACTIONS (5)
  - MALLORY-WEISS SYNDROME [None]
  - PANCREATITIS ACUTE [None]
  - PEPTIC ULCER [None]
  - GASTRIC ULCER [None]
  - DUODENITIS [None]
